FAERS Safety Report 4423405-1 (Version None)
Quarter: 2004Q3

REPORT INFORMATION
  Report Type: 
  Country: None (occurrence: None)
  Receive Date: 20040806
  Receipt Date: 20040723
  Transmission Date: 20050211
  Serious: Yes (Hospitalization, Other)
  Sender: FDA-Public Use
  Company Number: 2004S1001321

PATIENT
  Age: 70 Year
  Sex: Female
  Weight: 70.7611 kg

DRUGS (3)
  1. NITROFURANTION [Suspect]
     Indication: KIDNEY INFECTION
     Dosage: 100MG BID, ORAL
     Route: 048
     Dates: start: 20040421, end: 20040425
  2. PHENAZOPYRIDINE HCL TAB [Suspect]
     Indication: KIDNEY INFECTION
     Dosage: 200MG TID,ORAL
     Route: 048
     Dates: start: 20040421
  3. TELMISARTAN [Concomitant]

REACTIONS (9)
  - ASTHENIA [None]
  - DRUG HYPERSENSITIVITY [None]
  - FEAR [None]
  - FEELING ABNORMAL [None]
  - FEELING JITTERY [None]
  - HEADACHE [None]
  - NAUSEA [None]
  - OEDEMA PERIPHERAL [None]
  - SWELLING [None]
